FAERS Safety Report 21252562 (Version 2)
Quarter: 2022Q3

REPORT INFORMATION
  Report Type: Report from Study
  Country: IT (occurrence: None)
  Receive Date: 20220825
  Receipt Date: 20220828
  Transmission Date: 20221027
  Serious: Yes (Hospitalization)
  Sender: FDA-Public Use
  Company Number: IT-ROCHE-2950366

PATIENT
  Age: 35 Year
  Sex: Female
  Weight: 55 kg

DRUGS (5)
  1. ATEZOLIZUMAB [Suspect]
     Active Substance: ATEZOLIZUMAB
     Indication: Invasive breast carcinoma
     Dosage: LAST DOSE: 30/SEP/2021. RECEIVED 16 COURSES
     Route: 042
     Dates: start: 20201008
  2. PERTUZUMAB [Suspect]
     Active Substance: PERTUZUMAB
     Indication: Invasive breast carcinoma
     Dosage: LAST DOSE: 30/SEP/2021, RECEIVED 16 COURSES
     Route: 042
     Dates: start: 20201008
  3. TRASTUZUMAB [Suspect]
     Active Substance: TRASTUZUMAB
     Indication: Invasive breast carcinoma
     Dosage: LAST DOSE: 30/SEP/2021, RECEIVED 16 COURSES
     Route: 042
     Dates: start: 20201008
  4. CARBOPLATIN [Suspect]
     Active Substance: CARBOPLATIN
     Indication: Invasive breast carcinoma
     Dosage: LAST DOSE: 29/JAN/2021, RECEIVED 12 COURSES
     Route: 042
     Dates: start: 20201008
  5. PACLITAXEL [Suspect]
     Active Substance: PACLITAXEL
     Indication: Invasive breast carcinoma
     Dosage: LAST DOSE: 29/JAN/2021, RECEIVED 12 COURSES
     Route: 042
     Dates: start: 20201008

REACTIONS (1)
  - Volvulus [Recovered/Resolved]

NARRATIVE: CASE EVENT DATE: 20211020
